FAERS Safety Report 7308224-0 (Version None)
Quarter: 2011Q1

REPORT INFORMATION
  Report Type: 
  Country: None (occurrence: None)
  Receive Date: 20110210
  Receipt Date: 20110210
  Transmission Date: 20110831
  Serious: Yes (Other)
  Sender: FDA-Public Use
  Company Number: 1022556-2011-00004

PATIENT
  Age: 64 Year
  Sex: Male
  Weight: 81.6475 kg

DRUGS (1)
  1. ACT MOUTHWASH RESTORING COOL SPLASH CINN 18 [Suspect]
     Indication: DENTAL DISORDER PROPHYLAXIS
     Dosage: TOPICAL; THREE TIMES
     Route: 061

REACTIONS (4)
  - HYPOAESTHESIA ORAL [None]
  - POOR QUALITY DRUG ADMINISTERED [None]
  - AGEUSIA [None]
  - PRODUCT QUALITY ISSUE [None]
